FAERS Safety Report 16199756 (Version 3)
Quarter: 2019Q4

REPORT INFORMATION
  Report Type: Spontaneous
  Country: US (occurrence: US)
  Receive Date: 20190415
  Receipt Date: 20191226
  Transmission Date: 20200122
  Serious: Yes (Other)
  Sender: FDA-Public Use
  Company Number: US-ASTRAZENECA-2019SE11932

PATIENT
  Sex: Female

DRUGS (20)
  1. AMBIEN [Concomitant]
     Active Substance: ZOLPIDEM TARTRATE
  2. LEVEMIR [Concomitant]
     Active Substance: INSULIN DETEMIR
  3. NEXIUM [Suspect]
     Active Substance: ESOMEPRAZOLE MAGNESIUM
     Dosage: GENERIC
     Route: 065
     Dates: start: 2013, end: 2018
  4. NEXIUM [Suspect]
     Active Substance: ESOMEPRAZOLE MAGNESIUM
     Route: 048
     Dates: start: 20131023, end: 2018
  5. ZOLPIDEM [Concomitant]
     Active Substance: ZOLPIDEM TARTRATE
  6. LASIX [Concomitant]
     Active Substance: FUROSEMIDE
  7. FORTAZ [Concomitant]
     Active Substance: CEFTAZIDIME SODIUM
  8. TIZANIDINE. [Concomitant]
     Active Substance: TIZANIDINE
  9. LISINOPRIL. [Concomitant]
     Active Substance: LISINOPRIL
  10. NEXIUM [Suspect]
     Active Substance: ESOMEPRAZOLE MAGNESIUM
     Route: 048
     Dates: start: 2008
  11. METOPROLOL. [Concomitant]
     Active Substance: METOPROLOL
  12. SIMVASTATIN. [Concomitant]
     Active Substance: SIMVASTATIN
  13. SENSIPAR [Concomitant]
     Active Substance: CINACALCET HYDROCHLORIDE
  14. PRILOSEC [Suspect]
     Active Substance: OMEPRAZOLE MAGNESIUM
     Indication: GASTROOESOPHAGEAL REFLUX DISEASE
     Route: 048
     Dates: start: 2008
  15. TRADJENTA [Concomitant]
     Active Substance: LINAGLIPTIN
  16. CALCITROL [Concomitant]
  17. OXYCODONE [Concomitant]
     Active Substance: OXYCODONE
  18. NEXIUM [Suspect]
     Active Substance: ESOMEPRAZOLE MAGNESIUM
     Route: 048
  19. VANCOMYCIN [Concomitant]
     Active Substance: VANCOMYCIN
  20. NEXIUM [Suspect]
     Active Substance: ESOMEPRAZOLE MAGNESIUM
     Route: 048
     Dates: start: 2008, end: 2013

REACTIONS (4)
  - Renal failure [Not Recovered/Not Resolved]
  - Acute kidney injury [Not Recovered/Not Resolved]
  - End stage renal disease [Not Recovered/Not Resolved]
  - Chronic kidney disease [Not Recovered/Not Resolved]
